FAERS Safety Report 8098637-4 (Version None)
Quarter: 2012Q1

REPORT INFORMATION
  Report Type: 
  Country: None (occurrence: None)
  Receive Date: 20120129
  Receipt Date: 20111027
  Transmission Date: 20120608
  Serious: No
  Sender: FDA-Public Use
  Company Number: US-ABBOTT-11P-163-0868911-00

PATIENT
  Age: 57 Year
  Sex: Female

DRUGS (14)
  1. MOBIC [Concomitant]
     Indication: PAIN
  2. SYMBICORT [Concomitant]
     Indication: ASTHMA
     Dates: start: 20110901
  3. NASACORT [Concomitant]
     Indication: HYPERSENSITIVITY
  4. ZYRTEC [Concomitant]
     Indication: ASTHMA
     Dosage: OTC, NIGHTLY
  5. ZYRTEC [Concomitant]
     Indication: HYPERSENSITIVITY
  6. PR SOMETHING INHALER [Concomitant]
     Indication: HYPERSENSITIVITY
  7. SINGULAIR [Concomitant]
     Indication: ASTHMA
     Dosage: DAILY
  8. SINGULAIR [Concomitant]
     Indication: HYPERSENSITIVITY
  9. NASACORT [Concomitant]
     Indication: ASTHMA
     Dosage: EVERY NIGHT
  10. FOSAMAX [Concomitant]
     Indication: OSTEOPOROSIS
  11. PR SOMETHING INHALER [Concomitant]
     Indication: ASTHMA
  12. HUMIRA [Suspect]
     Indication: PSORIASIS
     Dates: start: 20090501
  13. SYMBICORT [Concomitant]
     Indication: HYPERSENSITIVITY
  14. PREMPRO [Concomitant]
     Indication: OESTROGEN REPLACEMENT THERAPY
     Dosage: 0.625/2.5 MG EVERY DAY

REACTIONS (1)
  - INJECTION SITE PAIN [None]
